FAERS Safety Report 6259132-8 (Version None)
Quarter: 2009Q3

REPORT INFORMATION
  Report Type: 
  Country: None (occurrence: None)
  Receive Date: 20090707
  Receipt Date: 20090622
  Transmission Date: 20100115
  Serious: Yes (Other)
  Sender: FDA-Public Use
  Company Number: BR-GENENTECH-286014

PATIENT
  Age: 19 Year
  Sex: Male

DRUGS (8)
  1. MABTHERA [Suspect]
     Indication: HODGKIN'S DISEASE
     Dosage: 375 MG/M2, UNK
     Route: 065
     Dates: start: 20030101
  2. MYCOPHENOLATE MOFETIL [Suspect]
     Indication: GRAFT VERSUS HOST DISEASE
     Dosage: UNK
     Route: 065
     Dates: end: 20070801
  3. GEMCITABINE [Suspect]
     Indication: HODGKIN'S DISEASE
     Dosage: 1250 MG/M2, UNK
     Route: 065
     Dates: start: 20030101
  4. TACROLIMUS [Suspect]
     Indication: IMMUNOSUPPRESSION
     Dosage: UNK
     Route: 065
     Dates: end: 20070801
  5. METHOTREXATE [Suspect]
     Indication: IMMUNOSUPPRESSION
     Dosage: UNK
     Route: 065
     Dates: end: 20070801
  6. MELPHALAN [Concomitant]
     Indication: DRUG USE FOR UNKNOWN INDICATION
  7. THIOTEPA [Concomitant]
     Indication: DRUG USE FOR UNKNOWN INDICATION
  8. FLUDARABINE PHOSPHATE [Concomitant]
     Indication: DRUG USE FOR UNKNOWN INDICATION

REACTIONS (5)
  - GRAFT VERSUS HOST DISEASE [None]
  - MUCOSAL INFLAMMATION [None]
  - PNEUMONIA [None]
  - PYREXIA [None]
  - TUBERCULOSIS [None]
